FAERS Safety Report 11529113 (Version 1)
Quarter: 2015Q3

REPORT INFORMATION
  Report Type: Spontaneous
  Country: DK (occurrence: DK)
  Receive Date: 20150921
  Receipt Date: 20150921
  Transmission Date: 20151125
  Serious: Yes (Hospitalization, Other)
  Sender: FDA-Public Use
  Company Number: DK-WATSON-2015-19574

PATIENT
  Age: 39 Year
  Sex: Male

DRUGS (12)
  1. CLOZAPINE (UNKNOWN) [Interacting]
     Active Substance: CLOZAPINE
     Indication: SCHIZOPHRENIA, PARANOID TYPE
     Dosage: 100+0+0+400 MG, DAILY
     Route: 065
  2. AMISULPRIDE [Concomitant]
     Active Substance: AMISULPRIDE
     Indication: PRODUCT USED FOR UNKNOWN INDICATION
     Dosage: 0+0+0+200 MG, DAILY
     Route: 065
  3. PROPRANOLOL [Concomitant]
     Active Substance: PROPRANOLOL\PROPRANOLOL HYDROCHLORIDE
     Indication: ANXIETY
     Dosage: 30+0+0+10 MG, DAILY
     Route: 065
  4. PREGABALIN (UNKNOWN) [Suspect]
     Active Substance: PREGABALIN
     Indication: ANXIETY
     Dosage: 600 MG, DAILY
     Route: 065
  5. PREGABALIN (UNKNOWN) [Interacting]
     Active Substance: PREGABALIN
     Dosage: 525 MG, DAILY
     Route: 065
  6. CITALOPRAM [Concomitant]
     Active Substance: CITALOPRAM HYDROBROMIDE
     Indication: ANXIETY
     Dosage: 0+0+0+20 MG, DAILY
     Route: 065
  7. PREGABALIN (UNKNOWN) [Interacting]
     Active Substance: PREGABALIN
     Dosage: 75 MG, DAILY
     Route: 065
  8. PREGABALIN (UNKNOWN) [Interacting]
     Active Substance: PREGABALIN
     Dosage: 300 MG, DAILY
     Route: 065
  9. CLONAZEPAM. [Concomitant]
     Active Substance: CLONAZEPAM
     Indication: ANXIETY
     Dosage: 0.5 MG, DAILY
     Route: 065
  10. PREGABALIN (UNKNOWN) [Interacting]
     Active Substance: PREGABALIN
     Dosage: 150 MG, DAILY
     Route: 065
  11. PREGABALIN (UNKNOWN) [Interacting]
     Active Substance: PREGABALIN
     Dosage: 450 MG, DAILY
     Route: 065
  12. CLONAZEPAM. [Concomitant]
     Active Substance: CLONAZEPAM
     Dosage: 0+0+0.5+0.5 MG, DAILY
     Route: 065

REACTIONS (7)
  - Drug interaction [Recovered/Resolved]
  - Loss of consciousness [Recovered/Resolved]
  - Salivary hypersecretion [Unknown]
  - Multiple fractures [Unknown]
  - Off label use [Recovered/Resolved]
  - Seizure [Recovered/Resolved]
  - Drug level above therapeutic [Unknown]
